FAERS Safety Report 4319495-7 (Version None)
Quarter: 2004Q1

REPORT INFORMATION
  Report Type: 
  Country: None (occurrence: None)
  Receive Date: 20040318
  Receipt Date: 20040317
  Transmission Date: 20041129
  Serious: Yes (Death)
  Sender: FDA-Public Use
  Company Number: 04-03-0310

PATIENT
  Age: 61 Year
  Sex: Male

DRUGS (1)
  1. CLOZAPINE [Suspect]
     Indication: SCHIZOPHRENIA
     Dosage: 100-400MG QD ORAL
     Route: 048
     Dates: start: 20031001, end: 20040201

REACTIONS (1)
  - DEATH [None]
